FAERS Safety Report 24447289 (Version 1)
Quarter: 2024Q4

REPORT INFORMATION
  Report Type: Spontaneous
  Country: US (occurrence: US)
  Receive Date: 20241016
  Receipt Date: 20241016
  Transmission Date: 20250114
  Serious: No
  Sender: SANOFI AVENTIS
  Company Number: US-SA-2024SA294508

PATIENT
  Age: 73 Year
  Sex: Female

DRUGS (2)
  1. KEVZARA [Suspect]
     Active Substance: SARILUMAB
     Indication: Drug therapy
     Dosage: 200 MG, QOW
     Route: 058
     Dates: start: 20240822
  2. EPOGEN [Concomitant]
     Active Substance: ERYTHROPOIETIN
     Dosage: UNK

REACTIONS (2)
  - Fatigue [Unknown]
  - Headache [Unknown]

NARRATIVE: CASE EVENT DATE: 20240101
